FAERS Safety Report 7486094-8 (Version None)
Quarter: 2011Q2

REPORT INFORMATION
  Report Type: 
  Country: None (occurrence: None)
  Receive Date: 20110517
  Receipt Date: 20110510
  Transmission Date: 20111010
  Serious: Yes (Hospitalization)
  Sender: FDA-Public Use
  Company Number: JP-B.I. PHARMACEUTICALS,INC./RIDGEFIELD-2011-BP-11252NB

PATIENT
  Sex: Female
  Weight: 55 kg

DRUGS (7)
  1. CARVEDILOL [Concomitant]
     Dosage: 5 MG
     Route: 048
     Dates: start: 20080201
  2. ASPENON [Concomitant]
     Dosage: 40 MG
     Route: 048
     Dates: start: 20080201
  3. OMEPRAL [Concomitant]
     Dosage: 10 MG
     Route: 048
     Dates: start: 20080201
  4. MAGMITT [Concomitant]
     Dosage: 990 MG
     Route: 048
     Dates: start: 20080201
  5. JUVELA [Concomitant]
     Dosage: 200 MG
     Route: 048
     Dates: start: 20080201
  6. PRAZAXA [Suspect]
     Indication: ATRIAL FIBRILLATION
     Dosage: 220 MG
     Route: 048
     Dates: start: 20110409, end: 20110419
  7. ASPIRIN [Concomitant]
     Dosage: 100 MG
     Route: 048
     Dates: start: 20080201

REACTIONS (1)
  - CARDIAC FAILURE CONGESTIVE [None]
